FAERS Safety Report 11129974 (Version 1)
Quarter: 2015Q2

REPORT INFORMATION
  Report Type: Spontaneous
  Country: US (occurrence: None)
  Receive Date: 20150520
  Receipt Date: 20150520
  Transmission Date: 20150821
  Serious: Yes (Other)
  Sender: FDA-Public Use
  Company Number: None

PATIENT
  Age: 34 Year
  Sex: Female
  Weight: 78.47 kg

DRUGS (3)
  1. CLOBETASOL OINTMENT [Concomitant]
  2. CONTRAVE [Suspect]
     Active Substance: BUPROPION HYDROCHLORIDE\NALTREXONE HYDROCHLORIDE
     Indication: WEIGHT DECREASED
     Dosage: PILLS
     Route: 048
     Dates: start: 20150418, end: 20150508
  3. PREDNISONE. [Concomitant]
     Active Substance: PREDNISONE

REACTIONS (5)
  - Rash pruritic [None]
  - Rash erythematous [None]
  - Acute generalised exanthematous pustulosis [None]
  - Urticaria [None]
  - Joint swelling [None]

NARRATIVE: CASE EVENT DATE: 20150508
